FAERS Safety Report 22310291 (Version 2)
Quarter: 2023Q2

REPORT INFORMATION
  Report Type: Spontaneous
  Country: US (occurrence: US)
  Receive Date: 20230511
  Receipt Date: 20230526
  Transmission Date: 20230722
  Serious: Yes (Hospitalization)
  Sender: FDA-Public Use
  Company Number: US-TEVA-2023-US-2884591

PATIENT
  Age: 78 Year
  Sex: Male

DRUGS (4)
  1. WARFARIN [Interacting]
     Active Substance: WARFARIN
     Indication: Deep vein thrombosis
     Route: 065
  2. SULFAMETHOXAZOLE\TRIMETHOPRIM [Interacting]
     Active Substance: SULFAMETHOXAZOLE\TRIMETHOPRIM
     Indication: Lymphangitis
     Dosage: RECEIVED SULFAMETHOXAZOLE 800 MG; TRIMETHOPRIM 160 MG
     Route: 065
  3. CEFADROXIL [Suspect]
     Active Substance: CEFADROXIL
     Indication: Lymphangitis
     Route: 065
  4. CEFTRIAXONE [Suspect]
     Active Substance: CEFTRIAXONE
     Indication: Lymphangitis
     Route: 030

REACTIONS (4)
  - Anticoagulant-related nephropathy [Recovered/Resolved]
  - Nephritis [Recovered/Resolved]
  - International normalised ratio increased [Recovered/Resolved]
  - Drug interaction [Unknown]
